FAERS Safety Report 19675027 (Version 1)
Quarter: 2021Q3

REPORT INFORMATION
  Report Type: Spontaneous
  Country: US (occurrence: US)
  Receive Date: 20210809
  Receipt Date: 20210809
  Transmission Date: 20211014
  Serious: No
  Sender: FDA-Public Use
  Company Number: US-ROCHE-2737876

PATIENT
  Sex: Female

DRUGS (2)
  1. ROZLYTREK [Suspect]
     Active Substance: ENTRECTINIB
     Indication: NEOPLASM
  2. ROZLYTREK [Suspect]
     Active Substance: ENTRECTINIB
     Indication: MALIGNANT CONNECTIVE TISSUE NEOPLASM
     Route: 048
     Dates: start: 20191115

REACTIONS (3)
  - Pain [Not Recovered/Not Resolved]
  - Off label use [Unknown]
  - Intentional product use issue [Unknown]
